FAERS Safety Report 11026427 (Version 1)
Quarter: 2015Q2

REPORT INFORMATION
  Report Type: Report from Study
  Country: US (occurrence: US)
  Receive Date: 20150414
  Receipt Date: 20150414
  Transmission Date: 20150821
  Serious: Yes (Other)
  Sender: FDA-Public Use
  Company Number: PHEH2014US023384

PATIENT
  Age: 53 Year
  Sex: Female

DRUGS (1)
  1. SANDOSTATIN LAR DEPOT [Suspect]
     Active Substance: OCTREOTIDE ACETATE
     Indication: CARCINOID SYNDROME
     Dosage: 20 MG, EVERY 4 WEEKS
     Route: 030
     Dates: start: 20140124

REACTIONS (6)
  - Pain [Unknown]
  - Fatigue [Unknown]
  - Nephrolithiasis [Unknown]
  - Glucose tolerance impaired [Recovering/Resolving]
  - Lower urinary tract symptoms [Unknown]
  - Abdominal pain lower [Unknown]

NARRATIVE: CASE EVENT DATE: 20140701
